FAERS Safety Report 12674084 (Version 3)
Quarter: 2016Q4

REPORT INFORMATION
  Report Type: Report from Study
  Country: ZA (occurrence: ZA)
  Receive Date: 20160822
  Receipt Date: 20161021
  Transmission Date: 20170207
  Serious: Yes (Other)
  Sender: FDA-Public Use
  Company Number: ZA-AMGEN-ZAFCT2016108961

PATIENT
  Age: 54 Year
  Sex: Male
  Weight: 80 kg

DRUGS (7)
  1. PREXUM [Concomitant]
     Active Substance: PERINDOPRIL ERBUMINE
     Dosage: 4 MG, QD
     Route: 048
  2. ECOTRIN [Concomitant]
     Active Substance: ASPIRIN
     Dosage: 81 MG, QD
     Route: 048
  3. AMG 145 [Suspect]
     Active Substance: EVOLOCUMAB
     Indication: DYSLIPIDAEMIA
     Dosage: UNK
     Route: 058
     Dates: start: 20141008, end: 20160816
  4. ZESTRIL [Concomitant]
     Active Substance: LISINOPRIL
     Dosage: 1 UNK, QD
     Route: 048
  5. ATORVASTATIN [Concomitant]
     Active Substance: ATORVASTATIN
     Indication: DYSLIPIDAEMIA
     Dosage: 80 MG, UNK
     Dates: start: 20140828
  6. PREFILLED AUTOINJECTOR/PEN [Suspect]
     Active Substance: DEVICE
     Indication: DYSLIPIDAEMIA
     Dosage: UNK
     Route: 058
     Dates: start: 20141008, end: 20160816
  7. DILATREND [Concomitant]
     Active Substance: CARVEDILOL
     Dosage: 12.5 MG, QD
     Route: 048

REACTIONS (1)
  - Alanine aminotransferase increased [Recovered/Resolved]

NARRATIVE: CASE EVENT DATE: 20160816
